FAERS Safety Report 5095170-9 (Version None)
Quarter: 2006Q3

REPORT INFORMATION
  Report Type: 
  Country: None (occurrence: None)
  Receive Date: 20060901
  Receipt Date: 20060622
  Transmission Date: 20061208
  Serious: Yes (Hospitalization, Other)
  Sender: FDA-Public Use
  Company Number: 2006UW13251

PATIENT
  Age: 46 Year
  Sex: Female

DRUGS (3)
  1. SEROQUEL [Suspect]
     Indication: BIPOLAR DISORDER
     Route: 048
     Dates: start: 20050927, end: 20060501
  2. SEROQUEL [Suspect]
     Indication: AFFECTIVE DISORDER
     Route: 048
     Dates: start: 20050927, end: 20060501
  3. EFFEXOR XR [Concomitant]
     Indication: DEPRESSION
     Dates: start: 20051214

REACTIONS (4)
  - DEHYDRATION [None]
  - HEPATOMEGALY [None]
  - NAUSEA [None]
  - VOMITING [None]
